FAERS Safety Report 5212774-0 (Version None)
Quarter: 2007Q1

REPORT INFORMATION
  Report Type: 
  Country: None (occurrence: None)
  Receive Date: 20070119
  Receipt Date: 20070109
  Transmission Date: 20070707
  Serious: Yes (Hospitalization)
  Sender: FDA-Public Use
  Company Number: FR-JNJFOC-20070102483

PATIENT
  Sex: Female

DRUGS (2)
  1. REMICADE [Suspect]
     Indication: POLYMYALGIA RHEUMATICA
     Dosage: 7 INFUSIONS
     Route: 042
  2. ENBREL [Suspect]
     Indication: POLYMYALGIA RHEUMATICA
     Dosage: 1 INFUSION
     Route: 065

REACTIONS (5)
  - ARTHRITIS [None]
  - CARDIAC TAMPONADE [None]
  - CUTANEOUS LUPUS ERYTHEMATOSUS [None]
  - DNA ANTIBODY POSITIVE [None]
  - PERICARDITIS [None]
